FAERS Safety Report 22635051 (Version 1)
Quarter: 2023Q2

REPORT INFORMATION
  Report Type: Spontaneous
  Country: SI (occurrence: SI)
  Receive Date: 20230623
  Receipt Date: 20230623
  Transmission Date: 20230721
  Serious: Yes (Other)
  Sender: FDA-Public Use
  Company Number: SI-JNJFOC-20230653912

PATIENT
  Age: 24 Year
  Sex: Female

DRUGS (3)
  1. STELARA [Suspect]
     Active Substance: USTEKINUMAB
     Indication: Colitis ulcerative
     Route: 040
     Dates: start: 202006
  2. STELARA [Suspect]
     Active Substance: USTEKINUMAB
     Route: 058
     Dates: start: 202006
  3. MEDROL [Concomitant]
     Active Substance: METHYLPREDNISOLONE

REACTIONS (7)
  - Haematochezia [Recovered/Resolved]
  - Bone giant cell tumour [Unknown]
  - Abdominal pain [Recovered/Resolved]
  - Fall [Recovered/Resolved]
  - Swelling [Recovered/Resolved]
  - Constipation [Recovered/Resolved]
  - Diarrhoea [Recovered/Resolved]
